FAERS Safety Report 5045216-9 (Version None)
Quarter: 2006Q3

REPORT INFORMATION
  Report Type: 
  Country: None (occurrence: None)
  Receive Date: 20060707
  Receipt Date: 20060628
  Transmission Date: 20061208
  Serious: Yes (Death)
  Sender: FDA-Public Use
  Company Number: FR-GLAXOSMITHKLINE-B0429487A

PATIENT
  Age: 67 Year
  Sex: Male

DRUGS (5)
  1. TRACRIUM [Suspect]
     Route: 042
     Dates: start: 20060530, end: 20060530
  2. AUGMENTIN '125' [Suspect]
     Dosage: 2G SINGLE DOSE
     Route: 048
  3. HYPNOVEL [Suspect]
     Route: 042
     Dates: start: 20060530, end: 20060530
  4. RAPIFEN [Suspect]
     Route: 042
     Dates: start: 20060530, end: 20060530
  5. PROPOFOL [Suspect]
     Route: 042
     Dates: start: 20060530, end: 20060530

REACTIONS (7)
  - CARDIAC ARREST [None]
  - RASH GENERALISED [None]
  - RESPIRATORY ARREST [None]
  - SHOCK [None]
  - TACHYCARDIA [None]
  - VENTRICULAR FIBRILLATION [None]
  - VENTRICULAR TACHYCARDIA [None]
